FAERS Safety Report 15689754 (Version 4)
Quarter: 2019Q3

REPORT INFORMATION
  Report Type: Report from Study
  Country: JP (occurrence: JP)
  Receive Date: 20181205
  Receipt Date: 20190827
  Transmission Date: 20191004
  Serious: No
  Sender: FDA-Public Use
  Company Number: JP-ALLERGAN-1855266US

PATIENT
  Age: 38 Year
  Sex: Male
  Weight: 65.6 kg

DRUGS (14)
  1. INVEGA [Suspect]
     Active Substance: PALIPERIDONE
     Dosage: 9 MG, QD
     Route: 048
     Dates: start: 20180512, end: 20180517
  2. INVEGA [Suspect]
     Active Substance: PALIPERIDONE
     Dosage: 6 MG, QD
     Route: 048
     Dates: start: 20180507, end: 20180511
  3. TEGRETOL [Suspect]
     Active Substance: CARBAMAZEPINE
     Dosage: 200 MG, QD
     Route: 048
     Dates: start: 20180604, end: 20180607
  4. BIPERIDEN HYDROCHLORIDE [Concomitant]
     Active Substance: BIPERIDEN HYDROCHLORIDE
     Indication: PRODUCT USED FOR UNKNOWN INDICATION
     Dosage: UNK
     Route: 065
     Dates: start: 20180529
  5. INVEGA [Suspect]
     Active Substance: PALIPERIDONE
     Indication: SCHIZOPHRENIA
     Dosage: 12 MG, QD
     Route: 048
     Dates: start: 20180518
  6. ARIPIPRAZOLE. [Concomitant]
     Active Substance: ARIPIPRAZOLE
     Indication: PRODUCT USED FOR UNKNOWN INDICATION
     Dosage: UNK
     Route: 065
     Dates: end: 20180522
  7. TEGRETOL [Suspect]
     Active Substance: CARBAMAZEPINE
     Dosage: 400 MG, QD
     Route: 048
     Dates: start: 20180608, end: 20180614
  8. TEGRETOL [Suspect]
     Active Substance: CARBAMAZEPINE
     Indication: SCHIZOPHRENIA
     Dosage: 600 MG, QD
     Route: 048
     Dates: start: 20180615
  9. ASENAPINE MALEATE UNK [Suspect]
     Active Substance: ASENAPINE MALEATE
     Dosage: 5 MG, BID MORNING AND EVENING
     Route: 060
     Dates: start: 20180626, end: 20180705
  10. ASENAPINE MALEATE UNK [Suspect]
     Active Substance: ASENAPINE MALEATE
     Dosage: 10 MG, BID MORNING AND EVENING
     Route: 060
     Dates: start: 20180531, end: 20180625
  11. ASENAPINE MALEATE UNK [Suspect]
     Active Substance: ASENAPINE MALEATE
     Indication: SCHIZOPHRENIA
     Dosage: 5 MG, QD EVENING
     Route: 060
     Dates: start: 20180706, end: 20180708
  12. ASENAPINE MALEATE UNK [Suspect]
     Active Substance: ASENAPINE MALEATE
     Dosage: 5 MG, BID MORNING AND EVENING
     Route: 060
     Dates: start: 20180523, end: 20180530
  13. FLUNITRAZEPAM [Concomitant]
     Active Substance: FLUNITRAZEPAM
     Indication: PRODUCT USED FOR UNKNOWN INDICATION
     Dosage: UNK
     Route: 065
  14. VALPROATE SODIUM. [Concomitant]
     Active Substance: VALPROATE SODIUM
     Indication: PRODUCT USED FOR UNKNOWN INDICATION
     Dosage: UNK
     Route: 065
     Dates: start: 20180426, end: 20180529

REACTIONS (3)
  - Akathisia [Recovered/Resolved]
  - Atrioventricular block first degree [Recovered/Resolved]
  - Hypotension [Unknown]

NARRATIVE: CASE EVENT DATE: 20180529
